FAERS Safety Report 22297542 (Version 1)
Quarter: 2023Q2

REPORT INFORMATION
  Report Type: Spontaneous
  Country: US (occurrence: US)
  Receive Date: 20230509
  Receipt Date: 20230509
  Transmission Date: 20230722
  Serious: Yes (Hospitalization, Other)
  Sender: FDA-Public Use
  Company Number: US-Vifor (International) Inc.-VIT-2023-03238

PATIENT
  Age: 69 Year
  Sex: Female
  Weight: 72.7 kg

DRUGS (1)
  1. MIRCERA [Suspect]
     Active Substance: METHOXY POLYETHYLENE GLYCOL-EPOETIN BETA
     Indication: Anaemia of chronic disease
     Route: 040
     Dates: start: 20230324, end: 20230421

REACTIONS (4)
  - Drug hypersensitivity [Recovered/Resolved]
  - Unresponsive to stimuli [Recovered/Resolved]
  - Dizziness [Recovered/Resolved]
  - Blood pressure decreased [Recovered/Resolved]

NARRATIVE: CASE EVENT DATE: 20230101
